FAERS Safety Report 6835254-5 (Version None)
Quarter: 2010Q3

REPORT INFORMATION
  Report Type: 
  Country: None (occurrence: None)
  Receive Date: 20100713
  Receipt Date: 20100630
  Transmission Date: 20110219
  Serious: Yes (Death, Other)
  Sender: FDA-Public Use
  Company Number: PL-BAYER-201031247GPV

PATIENT
  Age: 48 Year
  Sex: Male

DRUGS (12)
  1. ALEMTUZUMAB [Suspect]
     Indication: T-CELL LYMPHOMA
     Route: 058
     Dates: start: 20091225, end: 20091225
  2. PREDNISONE [Suspect]
     Indication: T-CELL LYMPHOMA
     Route: 048
     Dates: start: 20100116, end: 20100120
  3. CYCLOPHOSPHAMIDE [Suspect]
     Indication: T-CELL LYMPHOMA
     Route: 042
     Dates: start: 20100116, end: 20100116
  4. DOXORUBICIN HCL [Suspect]
     Indication: T-CELL LYMPHOMA
     Route: 042
     Dates: start: 20100116, end: 20100116
  5. VINCRISTINE [Suspect]
     Indication: T-CELL LYMPHOMA
     Route: 042
     Dates: start: 20100116, end: 20100116
  6. NEUPOGEN [Suspect]
     Indication: T-CELL LYMPHOMA
     Dosage: NOT APPLICABLE
  7. VORICONAZOLE [Concomitant]
     Indication: GASTROINTESTINAL CANDIDIASIS
     Dosage: TOTAL DAILY DOSE: 400 MG
     Route: 048
     Dates: start: 20091208, end: 20100125
  8. ACYCLOVIR [Concomitant]
     Indication: ANTIVIRAL PROPHYLAXIS
     Dosage: TOTAL DAILY DOSE: 1200 MG
     Route: 048
     Dates: start: 20091225, end: 20100125
  9. PROPAFENONE HCL [Concomitant]
     Indication: SUPRAVENTRICULAR EXTRASYSTOLES
     Dosage: TOTAL DAILY DOSE: 450 MG
     Route: 048
     Dates: start: 20091214, end: 20100125
  10. ENOXAPARIN SODIUM [Concomitant]
     Indication: PROPHYLAXIS
     Route: 058
     Dates: start: 20091228, end: 20100125
  11. OMEPRAZOLE [Concomitant]
     Indication: PROPHYLAXIS AGAINST GASTROINTESTINAL ULCER
     Route: 048
     Dates: start: 20091201, end: 20100125
  12. MORPHINE [Concomitant]
     Dosage: TOTAL DAILY DOSE: 2 MG/H
     Route: 042
     Dates: start: 20100125, end: 20100125

REACTIONS (7)
  - CACHEXIA [None]
  - CYTOMEGALOVIRUS VIRAEMIA [None]
  - DERMATITIS EXFOLIATIVE [None]
  - DIARRHOEA [None]
  - GASTROINTESTINAL CANDIDIASIS [None]
  - GENERAL PHYSICAL HEALTH DETERIORATION [None]
  - RENAL FAILURE [None]
